FAERS Safety Report 5347519-7 (Version None)
Quarter: 2007Q2

REPORT INFORMATION
  Report Type: 
  Country: None (occurrence: None)
  Receive Date: 20070606
  Receipt Date: 20070530
  Transmission Date: 20071010
  Serious: Yes (Other)
  Sender: FDA-Public Use
  Company Number: US-NOVOPROD-262972

PATIENT
  Sex: Male
  Weight: 78.73 kg

DRUGS (2)
  1. NOVORAPID FLEXPEN [Suspect]
     Indication: DIABETES MELLITUS INSULIN-DEPENDENT
     Dosage: 36 IU, QD
     Route: 058
     Dates: start: 20060808, end: 20070423
  2. INSULIN DETEMIR FLEXPEN [Suspect]
     Indication: DIABETES MELLITUS INSULIN-DEPENDENT
     Dosage: 20 IU, QD
     Route: 058
     Dates: start: 20060808, end: 20070422

REACTIONS (1)
  - LOSS OF CONSCIOUSNESS [None]
